FAERS Safety Report 23109989 (Version 1)
Quarter: 2023Q4

REPORT INFORMATION
  Report Type: Spontaneous
  Country: US (occurrence: None)
  Receive Date: 20231023
  Receipt Date: 20231023
  Transmission Date: 20240109
  Serious: No
  Sender: FDA-Public Use
  Company Number: None

PATIENT
  Age: 62 Year
  Sex: Male
  Weight: 77.8 kg

DRUGS (5)
  1. CABOMETYX [Suspect]
     Active Substance: CABOZANTINIB S-MALATE
     Indication: Renal cell carcinoma
     Dosage: OTHER FREQUENCY : ALT 1QD +2QD;?
     Route: 048
     Dates: start: 20230614
  2. PROCHLORPERAZINE [Concomitant]
     Active Substance: PROCHLORPERAZINE
  3. MORPHINE SULFATE [Concomitant]
     Active Substance: MORPHINE SULFATE
  4. BUDESONIDE [Concomitant]
     Active Substance: BUDESONIDE
  5. ALBUTEROL SULFATE [Concomitant]
     Active Substance: ALBUTEROL SULFATE

REACTIONS (2)
  - Blister [None]
  - Mucosal inflammation [None]

NARRATIVE: CASE EVENT DATE: 20231023
